FAERS Safety Report 9827315 (Version 1)
Quarter: 2013Q4

REPORT INFORMATION
  Report Type: Spontaneous
  Country: US (occurrence: None)
  Receive Date: 20131223
  Receipt Date: 20131223
  Transmission Date: 20140711
  Serious: No
  Sender: FDA-Public Use
  Company Number: 220358LEO

PATIENT
  Age: 60 Year
  Sex: Male

DRUGS (2)
  1. PICATO [Suspect]
     Indication: ACTINIC KERATOSIS
     Dosage: 1 IN 1 D, TOPICAL
     Dates: start: 20130130
  2. TIAZAC [Suspect]
     Indication: HYPERTENSION
     Dosage: 1 IN 1 D
     Route: 048

REACTIONS (3)
  - Application site erythema [None]
  - Application site swelling [None]
  - Drug administered at inappropriate site [None]
